FAERS Safety Report 25471939 (Version 1)
Quarter: 2025Q2

REPORT INFORMATION
  Report Type: Spontaneous
  Country: CA (occurrence: CA)
  Receive Date: 20250624
  Receipt Date: 20250624
  Transmission Date: 20250717
  Serious: Yes (Other)
  Sender: SANOFI AVENTIS
  Company Number: CA-SA-2025SA176292

PATIENT
  Age: 65 Year
  Sex: Male
  Weight: 85 kg

DRUGS (4)
  1. INSULIN ASPART [Suspect]
     Active Substance: INSULIN ASPART
     Indication: Diabetes mellitus
     Dosage: UNK UNK, BID
     Route: 058
  2. ASPIRIN [Concomitant]
     Active Substance: ASPIRIN
     Route: 058
  3. RAMIPRIL [Concomitant]
     Active Substance: RAMIPRIL
  4. ATORVASTATIN [Concomitant]
     Active Substance: ATORVASTATIN
     Route: 048

REACTIONS (2)
  - Malaise [Recovering/Resolving]
  - Product ineffective [Unknown]
